FAERS Safety Report 5780468-9 (Version None)
Quarter: 2008Q2

REPORT INFORMATION
  Report Type: 
  Country: None (occurrence: None)
  Receive Date: 20080620
  Receipt Date: 20080611
  Transmission Date: 20081010
  Serious: Yes (Other)
  Sender: FDA-Public Use
  Company Number: US-ELI_LILLY_AND_COMPANY-US200806003694

PATIENT
  Age: 94 Year
  Sex: Male

DRUGS (1)
  1. GEMZAR [Suspect]
     Indication: PANCREATIC CARCINOMA RESECTABLE

REACTIONS (3)
  - ERYTHEMA [None]
  - HEADACHE [None]
  - NEUROTOXICITY [None]
